FAERS Safety Report 4901362-9 (Version None)
Quarter: 2006Q1

REPORT INFORMATION
  Report Type: 
  Country: None (occurrence: None)
  Receive Date: 20060206
  Receipt Date: 20051205
  Transmission Date: 20060701
  Serious: Yes (Hospitalization)
  Sender: FDA-Public Use
  Company Number: NLWYE208906DEC05

PATIENT
  Sex: Female

DRUGS (7)
  1. ENBREL [Suspect]
     Indication: RHEUMATOID ARTHRITIS
     Route: 058
     Dates: start: 20050601
  2. PREDNISONE [Concomitant]
  3. PARACETAMOL [Concomitant]
     Dosage: 4-6 TABLETS PER DAY
  4. NEXIUM [Concomitant]
  5. CHLORTHALIDONE [Concomitant]
  6. ORAL ANTICOAGULANT NOS [Concomitant]
  7. VITAMIN B COMPLEX CAP [Concomitant]

REACTIONS (2)
  - ALOPECIA [None]
  - ARTHRITIS [None]
